FAERS Safety Report 6955397-5 (Version None)
Quarter: 2010Q3

REPORT INFORMATION
  Report Type: 
  Country: None (occurrence: None)
  Receive Date: 20100830
  Receipt Date: 20100510
  Transmission Date: 20110219
  Serious: Yes (Other)
  Sender: FDA-Public Use
  Company Number: US-BRISTOL-MYERS SQUIBB COMPANY-15097868

PATIENT
  Age: 79 Year
  Sex: Female
  Weight: 55 kg

DRUGS (11)
  1. SINEMET [Suspect]
     Indication: PARKINSON'S DISEASE
     Dosage: DF=50/200MG, 1/2 TABLET DOSE DECREASED TO 25/100MG TID IN 2010 DOSE DECREASED AGAIN AND INCREASED
     Dates: start: 20050527
  2. SEROQUEL [Concomitant]
  3. COMTAN [Concomitant]
  4. LEXAPRO [Concomitant]
  5. MULTIVITAMIN [Concomitant]
  6. EXELON [Concomitant]
     Dosage: EXELON PATCH
  7. ALLEGRA [Concomitant]
  8. TOVIAZ [Concomitant]
  9. NORVASC [Concomitant]
  10. LOTENSIN [Concomitant]
  11. ICAPS [Concomitant]

REACTIONS (1)
  - HALLUCINATION [None]
